FAERS Safety Report 21591937 (Version 1)
Quarter: 2022Q4

REPORT INFORMATION
  Report Type: Spontaneous
  Country: US (occurrence: None)
  Receive Date: 20221112
  Receipt Date: 20221112
  Transmission Date: 20230113
  Serious: Yes (Other)
  Sender: FDA-Public Use
  Company Number: None

PATIENT
  Age: 42 Year
  Sex: Female
  Weight: 56.25 kg

DRUGS (4)
  1. NITROFURANTOIN MONOHYDRATE MACROCRYSTALS [Suspect]
     Active Substance: NITROFURANTOIN\NITROFURANTOIN MONOHYDRATE
     Indication: Urinary tract infection
     Dosage: OTHER QUANTITY : 14 CAPSULE(S);?FREQUENCY : TWICE A DAY;?
     Route: 048
     Dates: start: 20221104, end: 20221111
  2. VITAMIN D3 [Concomitant]
     Active Substance: CHOLECALCIFEROL
  3. ZINC [Concomitant]
     Active Substance: ZINC
  4. VITAMIN B12 [Concomitant]
     Active Substance: CYANOCOBALAMIN

REACTIONS (10)
  - Rash erythematous [None]
  - Rash [None]
  - Blister [None]
  - Influenza like illness [None]
  - Arthralgia [None]
  - Migraine [None]
  - Chest discomfort [None]
  - Drug ineffective [None]
  - Blood pressure decreased [None]
  - Headache [None]

NARRATIVE: CASE EVENT DATE: 20221110
